FAERS Safety Report 11677440 (Version 1)
Quarter: 2015Q4

REPORT INFORMATION
  Report Type: Spontaneous
  Country: US (occurrence: US)
  Receive Date: 20151027
  Receipt Date: 20151027
  Transmission Date: 20160304
  Serious: No
  Sender: FDA-Public Use
  Company Number: US-ELI_LILLY_AND_COMPANY-US201010003473

PATIENT
  Sex: Female

DRUGS (6)
  1. FORTEO [Suspect]
     Active Substance: TERIPARATIDE
     Dosage: 20 UG, QOD
  2. FORTEO [Suspect]
     Active Substance: TERIPARATIDE
     Indication: OSTEOPOROSIS
     Dosage: 20 UG, DAILY (1/D)
     Dates: start: 200911
  3. VITAMINS [Concomitant]
     Active Substance: VITAMINS
     Dosage: UNK, UNKNOWN
  4. CALCIUM [Concomitant]
     Active Substance: CALCIUM
     Dosage: UNK, UNKNOWN
  5. VITAMINS [Concomitant]
     Active Substance: VITAMINS
     Dosage: UNK, QOD
  6. CALCIUM [Concomitant]
     Active Substance: CALCIUM
     Dosage: UNK, QOD

REACTIONS (2)
  - Drug prescribing error [Unknown]
  - Blood calcium increased [Unknown]

NARRATIVE: CASE EVENT DATE: 201004
